FAERS Safety Report 14700230 (Version 5)
Quarter: 2018Q2

REPORT INFORMATION
  Report Type: Spontaneous
  Country: US (occurrence: US)
  Receive Date: 20180330
  Receipt Date: 20180517
  Transmission Date: 20180711
  Serious: Yes (Hospitalization)
  Sender: FDA-Public Use
  Company Number: US-IMPAX LABORATORIES, INC-2018-IPXL-01029

PATIENT
  Age: 80 Year
  Sex: Male
  Weight: 69 kg

DRUGS (17)
  1. GABAPENTIN. [Concomitant]
     Active Substance: GABAPENTIN
     Indication: INSOMNIA
     Dosage: 300 MG, ONCE A DAY; AT NIGHT
     Route: 048
     Dates: start: 2016
  2. GABAPENTIN. [Concomitant]
     Active Substance: GABAPENTIN
     Indication: RAPID EYE MOVEMENTS SLEEP ABNORMAL
  3. MIDODRINE [Concomitant]
     Active Substance: MIDODRINE
     Dosage: 7.5 MG, 3 /DAY (MORNING, NOON AND EVENING)
     Route: 048
  4. RYTARY [Suspect]
     Active Substance: CARBIDOPA\LEVODOPA
     Indication: PARKINSON^S DISEASE
     Dosage: 61.25/245 MG, ONE CAPSULE AT BEDTIME
     Route: 048
     Dates: start: 2017
  5. GABAPENTIN. [Concomitant]
     Active Substance: GABAPENTIN
     Indication: NIGHTMARE
     Dosage: 100 MG, AT EVENING
     Route: 048
  6. MIDODRINE [Concomitant]
     Active Substance: MIDODRINE
     Indication: ORTHOSTATIC HYPOTENSION
     Dosage: 7.5 MG, 2 /DAY (BID)
     Route: 048
     Dates: start: 201711
  7. MULTIVITAMIN [Concomitant]
     Active Substance: VITAMINS
     Indication: PRODUCT USED FOR UNKNOWN INDICATION
     Dosage: UNK, DAILY (MORNING)
     Route: 065
  8. SODIUM CHLORIDE. [Concomitant]
     Active Substance: SODIUM CHLORIDE
     Indication: ORTHOSTATIC HYPOTENSION
     Dosage: 2 TABLETS (904 MG TOTAL), TWO TIMES A DAY WITH MEAL (MORNING AND EVENING)
     Route: 048
     Dates: start: 201711
  9. TYLENOL [Concomitant]
     Active Substance: ACETAMINOPHEN
     Indication: ARTHRALGIA
     Dosage: UNK, AS NEEDED
     Route: 048
  10. CARBIDOPA-LEVODOPA ER [Suspect]
     Active Substance: CARBIDOPA\LEVODOPA
     Indication: PARKINSON^S DISEASE
     Dosage: 25/100MG, 3 /DAY, (MORNING, NOON AND EVENING)
     Route: 048
  11. ATORVASTATIN [Concomitant]
     Active Substance: ATORVASTATIN
     Indication: BLOOD CHOLESTEROL INCREASED
     Dosage: 10 MG, 1 /DAY, EVENING
     Route: 048
  12. XALATAN [Concomitant]
     Active Substance: LATANOPROST
     Indication: PRODUCT USED FOR UNKNOWN INDICATION
     Dosage: 0.005 %, 1 /DAY, BEDTIME
     Route: 047
  13. RASAGILINE. [Concomitant]
     Active Substance: RASAGILINE
     Indication: PARKINSON^S DISEASE
     Dosage: 1 MG, ONCE A DAY IN THE MORING
     Route: 048
     Dates: start: 2012
  14. MIDODRINE [Concomitant]
     Active Substance: MIDODRINE
     Indication: HYPOTENSION
     Dosage: 5 MG, ONCE A DAY
     Route: 048
     Dates: start: 201711
  15. POLYETHYLENE GLYCOL [Concomitant]
     Active Substance: POLYETHYLENE GLYCOLS
     Indication: DIARRHOEA
     Dosage: 17 G, DAILY (1 TABLE SPOON IN JUICE)
     Route: 065
  16. CHOLECALCIFEROL [Concomitant]
     Active Substance: CHOLECALCIFEROL
     Indication: VITAMIN D DECREASED
     Dosage: 2000 IU, ONE OR TWO TIMES A DAY
     Route: 048
     Dates: start: 2017
  17. SIMVASTATIN. [Concomitant]
     Active Substance: SIMVASTATIN
     Indication: BLOOD CHOLESTEROL INCREASED
     Dosage: 10 MG, ONCE A DAY
     Route: 048
     Dates: start: 2008

REACTIONS (10)
  - Anaemia [Unknown]
  - Hypoacusis [Not Recovered/Not Resolved]
  - Orthostatic hypotension [Not Recovered/Not Resolved]
  - Blood sodium decreased [Unknown]
  - Treatment noncompliance [Unknown]
  - Lower urinary tract symptoms [Unknown]
  - Heart rate irregular [Unknown]
  - Fall [Not Recovered/Not Resolved]
  - Dizziness [Not Recovered/Not Resolved]
  - Prostatomegaly [Unknown]

NARRATIVE: CASE EVENT DATE: 2017
